FAERS Safety Report 22637410 (Version 1)
Quarter: 2023Q2

REPORT INFORMATION
  Report Type: Spontaneous
  Country: US (occurrence: US)
  Receive Date: 20230626
  Receipt Date: 20230626
  Transmission Date: 20230722
  Serious: No
  Sender: FDA-Public Use
  Company Number: US-BRISTOL-MYERS SQUIBB COMPANY-2023-088998

PATIENT
  Age: 69 Year
  Sex: Male
  Weight: 98.88 kg

DRUGS (1)
  1. REVLIMID [Suspect]
     Active Substance: LENALIDOMIDE
     Indication: Plasma cell myeloma
     Dosage: 21D OF 28DAYS
     Route: 048
     Dates: start: 20230601

REACTIONS (2)
  - Blood triglycerides increased [Recovering/Resolving]
  - Flatulence [Recovering/Resolving]
